FAERS Safety Report 4855130-7 (Version None)
Quarter: 2005Q4

REPORT INFORMATION
  Report Type: 
  Country: None (occurrence: None)
  Receive Date: 20051125
  Receipt Date: 20050120
  Transmission Date: 20060501
  Serious: Yes (Hospitalization)
  Sender: FDA-Public Use
  Company Number: US-JNJFOC-20041001879

PATIENT
  Age: 43 Year
  Sex: Female

DRUGS (7)
  1. LEVAQUIN [Suspect]
     Indication: PNEUMONIA
     Dates: start: 20031001
  2. DIGOXIN [Concomitant]
  3. MAGNESIUM [Concomitant]
  4. FOLIC ACID [Concomitant]
  5. FLOVENT [Concomitant]
  6. ALLEGRA [Concomitant]
  7. IRON [Concomitant]

REACTIONS (1)
  - STEVENS-JOHNSON SYNDROME [None]
